FAERS Safety Report 11215928 (Version 2)
Quarter: 2015Q3

REPORT INFORMATION
  Report Type: Spontaneous
  Country: US (occurrence: US)
  Receive Date: 20150624
  Receipt Date: 20150706
  Transmission Date: 20151125
  Serious: No
  Sender: FDA-Public Use
  Company Number: US-009507513-1506USA010099

PATIENT
  Sex: Female

DRUGS (1)
  1. NEXPLANON [Suspect]
     Active Substance: ETONOGESTREL
     Dosage: ONE ROD
     Dates: start: 201312

REACTIONS (5)
  - Metrorrhagia [Unknown]
  - Device difficult to use [Unknown]
  - Implant site inflammation [Unknown]
  - Device deployment issue [Unknown]
  - Haemorrhage [Unknown]

NARRATIVE: CASE EVENT DATE: 201312
